FAERS Safety Report 18407255 (Version 1)
Quarter: 2020Q4

REPORT INFORMATION
  Report Type: Spontaneous
  Country: FR (occurrence: FR)
  Receive Date: 20201020
  Receipt Date: 20201020
  Transmission Date: 20210114
  Serious: Yes (Other)
  Sender: FDA-Public Use
  Company Number: FR-PFIZER INC-2020404080

PATIENT
  Age: 14 Year
  Sex: Female
  Weight: 52 kg

DRUGS (4)
  1. TERCIAN [CYAMEMAZINE TARTRATE] [Suspect]
     Active Substance: CYAMEMAZINE
     Dosage: 100 MG, SINGLE (TOTAL)
     Route: 048
     Dates: start: 20200519, end: 20200519
  2. SERTRALINE HCL [Suspect]
     Active Substance: SERTRALINE HYDROCHLORIDE
     Dosage: 50 MG, SINGLE (TOTAL)
     Route: 048
     Dates: start: 20200519, end: 20200519
  3. THERALENE [Suspect]
     Active Substance: TRIMEPRAZINE
     Dosage: 25 MG, SINGLE (TOTAL)
     Route: 048
     Dates: start: 20200519, end: 20200519
  4. MELATONINE [Suspect]
     Active Substance: MELATONIN
     Dosage: 6 DF, SINGLE (TOTAL)
     Route: 048
     Dates: start: 20200519, end: 20200519

REACTIONS (2)
  - Somnolence [Unknown]
  - Poisoning deliberate [Recovered/Resolved]

NARRATIVE: CASE EVENT DATE: 20200519
